FAERS Safety Report 14247269 (Version 1)
Quarter: 2017Q4

REPORT INFORMATION
  Report Type: Spontaneous
  Country: US (occurrence: US)
  Receive Date: 20171204
  Receipt Date: 20171204
  Transmission Date: 20180321
  Serious: No
  Sender: FDA-Public Use
  Company Number: US-ALLERGAN-1680744US

PATIENT
  Age: 88 Year
  Sex: Female

DRUGS (2)
  1. ARICEPT [Concomitant]
     Active Substance: DONEPEZIL HYDROCHLORIDE
     Indication: DEMENTIA
     Dosage: UNK, QD
     Dates: start: 2015
  2. NAMENDA [Suspect]
     Active Substance: MEMANTINE HYDROCHLORIDE
     Indication: DEMENTIA
     Dosage: 10 MG, QD
     Route: 048
     Dates: start: 20161122, end: 20161203

REACTIONS (6)
  - Flushing [Recovered/Resolved]
  - Agitation [Recovered/Resolved]
  - Crying [Recovered/Resolved]
  - Hypersensitivity [Recovered/Resolved]
  - Nervousness [Recovered/Resolved]
  - Abdominal discomfort [Recovered/Resolved]

NARRATIVE: CASE EVENT DATE: 20161124
